FAERS Safety Report 6468957-5 (Version None)
Quarter: 2009Q4

REPORT INFORMATION
  Report Type: 
  Country: None (occurrence: None)
  Receive Date: 20091203
  Receipt Date: 20080103
  Transmission Date: 20100525
  Serious: Yes (Life-Threatening)
  Sender: FDA-Public Use
  Company Number: US-ELI_LILLY_AND_COMPANY-US200610000354

PATIENT
  Sex: Male
  Weight: 118.82 kg

DRUGS (13)
  1. LISPRO 25LIS75NPL [Suspect]
     Indication: TYPE 2 DIABETES MELLITUS
     Dosage: 40 U, EACH MORNING
     Route: 058
     Dates: start: 20060530
  2. LISPRO 25LIS75NPL [Suspect]
     Dosage: 44 U, EACH EVENING
     Route: 058
     Dates: start: 20060530, end: 20060930
  3. METFORMIN HCL [Concomitant]
     Indication: DIABETES MELLITUS
     Dates: start: 20040101
  4. GLYBURIDE [Concomitant]
     Indication: DIABETES MELLITUS
     Dates: start: 19970101
  5. TRICOR [Concomitant]
     Indication: HYPERLIPIDAEMIA
  6. LOVASTATIN [Concomitant]
     Indication: HYPERLIPIDAEMIA
     Dates: start: 19970101
  7. LISINOPRIL [Concomitant]
     Indication: HYPERTENSION
     Dates: start: 19950101
  8. BUPROPION HCL [Concomitant]
     Indication: PANIC ATTACK
     Dates: start: 19950101
  9. ATENOLOL [Concomitant]
     Indication: HYPERTENSION
     Dates: start: 19950101
  10. XANAX                                   /USA/ [Concomitant]
     Indication: PANIC ATTACK
     Dates: start: 19950101
  11. PRILOSEC [Concomitant]
     Indication: DYSPEPSIA
     Dates: start: 20050101
  12. TESTIM                                  /USA/ [Concomitant]
     Indication: HYPOGONADISM
     Dates: start: 20060101
  13. MULTI-VITAMINS [Concomitant]
     Indication: PROPHYLAXIS

REACTIONS (1)
  - ANAPHYLACTIC REACTION [None]
